FAERS Safety Report 25138884 (Version 2)
Quarter: 2025Q2

REPORT INFORMATION
  Report Type: Spontaneous
  Country: US (occurrence: US)
  Receive Date: 20250331
  Receipt Date: 20250430
  Transmission Date: 20250717
  Serious: No
  Sender: Unknown Manufacturer
  Company Number: US-MTPC-MTPA2025-0005820

PATIENT
  Sex: Female

DRUGS (2)
  1. RADICAVA ORS [Suspect]
     Active Substance: EDARAVONE
     Indication: Amyotrophic lateral sclerosis
     Dosage: 5 MILLILITER, QD FOR 10 DAYS OUT OF 14 DAYS FOLLOWED BY 14 DAY DRUG-FREE PERIODS
     Route: 065
     Dates: start: 20241029
  2. RADICAVA ORS [Suspect]
     Active Substance: EDARAVONE
     Indication: Amyotrophic lateral sclerosis
     Dosage: 5 MILLILITER, QD FOR 10 DAYS OUT OF 14 DAYS FOLLOWED BY 14 DAY DRUG-FREE PERIODS
     Route: 065
     Dates: start: 20241029

REACTIONS (3)
  - Contusion [Unknown]
  - Headache [Unknown]
  - Drug ineffective [Unknown]
